FAERS Safety Report 8525150-X (Version None)
Quarter: 2012Q3

REPORT INFORMATION
  Report Type: 
  Country: None (occurrence: None)
  Receive Date: 20120720
  Receipt Date: 20120710
  Transmission Date: 20120928
  Serious: Yes (Hospitalization)
  Sender: FDA-Public Use
  Company Number: PHHO2012DE008939

PATIENT
  Age: 37 Year
  Sex: Male
  Weight: 90 kg

DRUGS (9)
  1. PREDNISOLONE [Concomitant]
     Indication: PANCREAS TRANSPLANT
     Dosage: 10 MG, QD
     Route: 048
     Dates: start: 20120207, end: 20120227
  2. HYDROCORTISONE [Concomitant]
     Dosage: 200 MG, QD
     Route: 042
     Dates: start: 20120227
  3. IMIPENEM [Concomitant]
     Dosage: 100 MG, BID
     Route: 042
     Dates: start: 20120227
  4. FLUCONAZOLE [Concomitant]
     Dosage: 400 MG, QD
     Route: 042
     Dates: start: 20120227
  5. PENTAGLOBIN [Concomitant]
     Dosage: 15 G, QD
     Route: 042
     Dates: start: 20120228, end: 20120301
  6. MYCOPHENOLIC ACID [Suspect]
     Indication: PANCREAS TRANSPLANT
     Dosage: 720 MG, BID
     Route: 048
     Dates: start: 20120207
  7. PROGRAF [Concomitant]
     Indication: PANCREAS TRANSPLANT
     Dosage: 2X4.5 MG
     Route: 048
     Dates: start: 20120207
  8. VANCOMYCIN [Concomitant]
     Dosage: 20 MG, QD
     Route: 042
     Dates: start: 20120227
  9. PREDNISOLONE [Concomitant]
     Dosage: UNK
     Dates: start: 20120207

REACTIONS (3)
  - PANCREATITIS [None]
  - BLOOD GLUCOSE INCREASED [None]
  - LACERATION [None]
